FAERS Safety Report 20168803 (Version 2)
Quarter: 2022Q1

REPORT INFORMATION
  Report Type: Spontaneous
  Country: US (occurrence: US)
  Receive Date: 20211210
  Receipt Date: 20220224
  Transmission Date: 20220424
  Serious: Yes (Other)
  Sender: FDA-Public Use
  Company Number: US-BRISTOL-MYERS SQUIBB COMPANY-BMS-2021-132985

PATIENT
  Age: 44 Year
  Sex: Female

DRUGS (1)
  1. SPRYCEL [Suspect]
     Active Substance: DASATINIB
     Indication: Acute lymphocytic leukaemia
     Dosage: 140 MILLIGRAM, DAILY
     Route: 048
     Dates: start: 20211030

REACTIONS (6)
  - Mental impairment [Unknown]
  - Affective disorder [Unknown]
  - Mood swings [Unknown]
  - Crying [Unknown]
  - Agitation [Unknown]
  - Malaise [Unknown]
